FAERS Safety Report 8485471-6 (Version None)
Quarter: 2012Q3

REPORT INFORMATION
  Report Type: 
  Country: None (occurrence: None)
  Receive Date: 20120703
  Receipt Date: 20120625
  Transmission Date: 20120928
  Serious: Yes (Death, Hospitalization, Other)
  Sender: FDA-Public Use
  Company Number: US-ROCHE-725906

PATIENT
  Sex: Female
  Weight: 61.22 kg

DRUGS (27)
  1. PEMETREXED DISODIUM [Suspect]
     Indication: NON-SMALL CELL LUNG CANCER
     Dosage: LAST DOSE PRIOR TO SAE: 29 JULY 2010
     Route: 042
     Dates: start: 20100707, end: 20100729
  2. ASCORBIC ACID [Concomitant]
  3. HYDROCODONE BITARTRATE [Concomitant]
     Dosage: REPORTED AS HYDROCODONE/HOMATROPINE
  4. CRESTOR [Concomitant]
  5. PEMETREXED DISODIUM [Suspect]
     Dates: end: 20100903
  6. SYNTHROID [Concomitant]
  7. MEGACE [Concomitant]
  8. AVASTIN [Suspect]
     Indication: NON-SMALL CELL LUNG CANCER
     Dosage: LAST DOSE PRIOR TO SAE: 29 JULY 2010
     Route: 042
  9. PEMETREXED [Suspect]
     Dosage: DRUG THERAPY ON HOLD.
     Route: 042
     Dates: end: 20100819
  10. CALCIUM [Concomitant]
     Dosage: REPORTED AS CALCIUM W/ VITAMIN D
  11. ALBUTEROL [Concomitant]
  12. PREMPRO [Concomitant]
  13. OMEPRAZOLE [Concomitant]
  14. ALLEGRA [Concomitant]
  15. FOLIC ACID [Concomitant]
  16. CARBOPLATIN [Suspect]
     Indication: NON-SMALL CELL LUNG CANCER
     Dosage: DOSE: 6 AUC LAST DOSE PRIOR TO SAE: 29 JULY 2010.
     Route: 042
     Dates: start: 20100707, end: 20100729
  17. VITAMIN B-12 [Concomitant]
  18. AVASTIN [Suspect]
     Dosage: DRUG THERAPY ON HOLD.
     Route: 042
  19. FEXOFENADINE [Concomitant]
  20. CELEXA [Concomitant]
  21. ADVAIR DISKUS 100/50 [Concomitant]
  22. ZOFRAN [Concomitant]
  23. CARBOPLATIN [Suspect]
     Dates: end: 20100903
  24. IPRATROPIUM BROMIDE [Concomitant]
  25. ERGOCALCIFEROL [Concomitant]
     Dosage: REPORTED AS CALCIUM W/ VITAMIN D
  26. AVASTIN [Suspect]
  27. CARBOPLATIN [Suspect]
     Dosage: DRUG THERAPY ON HOLD.
     Route: 042
     Dates: end: 20100819

REACTIONS (2)
  - PROCEDURAL COMPLICATION [None]
  - DEATH [None]
